FAERS Safety Report 6450169-2 (Version None)
Quarter: 2009Q4

REPORT INFORMATION
  Report Type: 
  Country: None (occurrence: None)
  Receive Date: 20091123
  Receipt Date: 20091112
  Transmission Date: 20100525
  Serious: Yes (Hospitalization)
  Sender: FDA-Public Use
  Company Number: AT-ROCHE-660472

PATIENT
  Sex: Male
  Weight: 80 kg

DRUGS (3)
  1. XELODA [Suspect]
     Dosage: FREQUENCY: DAY 1 TO DAY 14 EVERY THREE WEEKS
     Route: 065
     Dates: start: 20090301, end: 20090601
  2. ELOXATIN [Suspect]
     Dosage: FREQUENCY: DAY 1, EVERY THREE WEEKS STRENGTH: 5MG/ML
     Route: 065
     Dates: start: 20090301, end: 20090601
  3. ASPIRIN [Concomitant]
     Dosage: STARTED MANY YEARS AGO
     Dates: start: 20030901, end: 20080901

REACTIONS (4)
  - BRONCHIECTASIS [None]
  - LUNG INFILTRATION [None]
  - PULMONARY FIBROSIS [None]
  - PULMONARY SEPSIS [None]
